FAERS Safety Report 10928572 (Version 1)
Quarter: 2015Q1

REPORT INFORMATION
  Report Type: Spontaneous
  Country: US (occurrence: None)
  Receive Date: 20150129
  Receipt Date: 20150129
  Transmission Date: 20150721
  Serious: Yes (Hospitalization)
  Sender: FDA-Public Use
  Company Number: A-US2014-104051

PATIENT
  Age: 72 Year
  Sex: Female

DRUGS (12)
  1. DIOVAN [Concomitant]
     Active Substance: VALSARTAN
  2. PAROXETINE [Concomitant]
     Active Substance: PAROXETINE\PAROXETINE HYDROCHLORIDE
  3. RIOCIGUAT [Concomitant]
     Active Substance: RIOCIGUAT
  4. PENTOXIFYLLINE (PENTOXIFYLLINE) [Concomitant]
  5. DEXILANT [Concomitant]
     Active Substance: DEXLANSOPRAZOLE
  6. XOPENEX (LEVOSALBUTAMOL HYDROCHLORIDE) [Concomitant]
  7. REVATIO (SILDENAFIL CITRATE) [Concomitant]
  8. KLOR-CON (POTASSIUM CHLORIDE) [Concomitant]
  9. COLCRYS [Concomitant]
     Active Substance: COLCHICINE
  10. PANTOPRAZOLE [Concomitant]
     Active Substance: PANTOPRAZOLE SODIUM
  11. PROLIA [Concomitant]
     Active Substance: DENOSUMAB
  12. OPSUMIT [Suspect]
     Active Substance: MACITENTAN
     Indication: PULMONARY HYPERTENSION
     Route: 048
     Dates: start: 20140318

REACTIONS (3)
  - Fatigue [None]
  - Dyspnoea [None]
  - Local swelling [None]

NARRATIVE: CASE EVENT DATE: 20140812
